FAERS Safety Report 9004481 (Version 1)
Quarter: 2013Q1

REPORT INFORMATION
  Report Type: Spontaneous
  Country: US (occurrence: None)
  Receive Date: 20130103
  Receipt Date: 20130103
  Transmission Date: 20140127
  Serious: Yes (Other)
  Sender: FDA-Public Use
  Company Number: None

PATIENT
  Age: 41 Year
  Sex: Female
  Weight: 43.55 kg

DRUGS (2)
  1. ZUTRIPRO [Suspect]
     Indication: SINUS CONGESTION
     Dosage: 5ML 4TO6 HRS
     Route: 048
     Dates: start: 20121228, end: 20121229
  2. ZUTRIPRO [Suspect]
     Indication: COUGH
     Dosage: 5ML 4TO6 HRS
     Route: 048
     Dates: start: 20121228, end: 20121229

REACTIONS (3)
  - Anxiety [None]
  - Restlessness [None]
  - Insomnia [None]
